FAERS Safety Report 8606844-4 (Version None)
Quarter: 2012Q3

REPORT INFORMATION
  Report Type: 
  Country: None (occurrence: None)
  Receive Date: 20120820
  Receipt Date: 20120808
  Transmission Date: 20120928
  Serious: Yes (Other)
  Sender: FDA-Public Use
  Company Number: CHPA2012US005475

PATIENT
  Age: 73 Year
  Sex: Male

DRUGS (1)
  1. EXCEDRIN EXTRA STRENGTH CAPLETS [Suspect]
     Indication: FATIGUE
     Dosage: 8-10 TABLETS A DAY
     Route: 048

REACTIONS (4)
  - DEPRESSION [None]
  - WITHDRAWAL SYNDROME [None]
  - OFF LABEL USE [None]
  - OVERDOSE [None]
